FAERS Safety Report 4330430-8 (Version None)
Quarter: 2004Q2

REPORT INFORMATION
  Report Type: 
  Country: None (occurrence: None)
  Receive Date: 20040402
  Receipt Date: 20031209
  Transmission Date: 20050107
  Serious: No
  Sender: FDA-Public Use
  Company Number: US-BRISTOL-MYERS SQUIBB COMPANY-12453684

PATIENT
  Age: 73 Year
  Sex: Female
  Weight: 84 kg

DRUGS (8)
  1. HYDROXYUREA [Suspect]
     Indication: POLYCYTHAEMIA VERA
     Route: 048
     Dates: start: 20010101, end: 20030101
  2. LIPITOR [Concomitant]
  3. CALCIUM [Concomitant]
  4. VITAMIN D [Concomitant]
  5. FOSAMAX [Concomitant]
  6. CHONDROITIN + GLUCOSAMINE [Concomitant]
  7. MULTI-VITAMINS [Concomitant]
  8. ASPIRIN [Concomitant]

REACTIONS (10)
  - ALOPECIA [None]
  - DRY SKIN [None]
  - DYSPNOEA [None]
  - FATIGUE [None]
  - KERATOCONJUNCTIVITIS SICCA [None]
  - MUSCLE CRAMP [None]
  - NAIL DISCOLOURATION [None]
  - NAIL DISORDER [None]
  - NOCTURIA [None]
  - PARAESTHESIA [None]
